FAERS Safety Report 16181842 (Version 1)
Quarter: 2019Q2

REPORT INFORMATION
  Report Type: Spontaneous
  Country: FR (occurrence: FR)
  Receive Date: 20190410
  Receipt Date: 20190410
  Transmission Date: 20190711
  Serious: Yes (Hospitalization)
  Sender: FDA-Public Use
  Company Number: FR-MYLANLABS-2019M1033321

PATIENT
  Age: 75 Year
  Sex: Female
  Weight: 64.5 kg

DRUGS (4)
  1. DULOXETINE. [Suspect]
     Active Substance: DULOXETINE
     Indication: PRODUCT USED FOR UNKNOWN INDICATION
     Dosage: 60 MILLIGRAM, QD
     Route: 048
  2. QUETIAPINE. [Suspect]
     Active Substance: QUETIAPINE
     Indication: PRODUCT USED FOR UNKNOWN INDICATION
     Dosage: 50 MILLIGRAM, QD
     Route: 048
     Dates: end: 20180731
  3. DIAZEPAM. [Suspect]
     Active Substance: DIAZEPAM
     Indication: BACK PAIN
     Dosage: 2 MILLIGRAM, QD
     Route: 048
     Dates: start: 20180709, end: 20180724
  4. ZOLPIDEM [Suspect]
     Active Substance: ZOLPIDEM\ZOLPIDEM TARTRATE
     Indication: INSOMNIA
     Dosage: 0.5 MILLIGRAM, QD
     Route: 048

REACTIONS (3)
  - Hallucination, visual [Recovered/Resolved]
  - Confusional state [Recovered/Resolved]
  - Fall [Recovering/Resolving]

NARRATIVE: CASE EVENT DATE: 20180723
